FAERS Safety Report 8887321 (Version 1)
Quarter: 2012Q4

REPORT INFORMATION
  Report Type: 
  Country: US (occurrence: US)
  Receive Date: 20121101
  Receipt Date: 20121101
  Transmission Date: 20130627
  Serious: Yes (Other)
  Sender: FDA-Public Use
  Company Number: US-PFIZER INC-2012271818

PATIENT
  Age: 56 Year
  Sex: Female

DRUGS (10)
  1. LIPITOR [Suspect]
     Dosage: 1 tablet 20 mg once a day
     Route: 048
  2. ASPIRIN [Suspect]
     Dosage: 1 tablet 81 mg once a day
     Route: 048
  3. ENALAPRIL MALEATE [Suspect]
     Dosage: 1 tablet 10 mg once day
     Route: 048
     Dates: start: 20120601
  4. METFORMIN HCL [Suspect]
     Dosage: 1 tablet 1000 mg  twice a day
     Route: 048
  5. TRAMADOL HCL [Suspect]
     Indication: PAIN
     Dosage: 50 mg, as needed ,(every 4-6 hours)
     Route: 048
  6. FLEXERIL [Suspect]
     Dosage: 10 mg, three times a day
     Route: 048
     Dates: start: 20110706
  7. ZETIA [Suspect]
     Dosage: 10 mg, once a day
     Route: 048
  8. PRO-AIR HFA [Suspect]
     Dosage: 2 puffs as needed 108 (90 Base) Mcg/Act Inhalation every 4 hrs
  9. ADVAIR DISKUS [Suspect]
     Dosage: 1 puff 250-50 mcg/dose inhalation every 12 hours
  10. SINGULAIR [Suspect]
     Dosage: 1 tablet in the evening 10 mg once day

REACTIONS (1)
  - Type 2 diabetes mellitus [Not Recovered/Not Resolved]
